FAERS Safety Report 4314461-X (Version None)
Quarter: 2004Q1

REPORT INFORMATION
  Report Type: 
  Country: None (occurrence: None)
  Receive Date: 20040308
  Receipt Date: 20040226
  Transmission Date: 20041129
  Serious: Yes (Hospitalization)
  Sender: FDA-Public Use
  Company Number: FR-JNJFOC-20040300005

PATIENT
  Age: 82 Year
  Sex: Female

DRUGS (10)
  1. IXPRIM (TRAMADOL/APAP) TABLETS [Suspect]
     Dosage: 3 IN 1 DAY, ORAL
     Route: 048
     Dates: end: 20040127
  2. LASILIX (FUROSEMIDE) UNSPECIFIED [Suspect]
     Dosage: 40 MG, 1 IN 1 DAY, ORAL
     Route: 048
     Dates: start: 20031229, end: 20040127
  3. SECTRAL [Concomitant]
  4. PRAVASTATIN SODIUM [Concomitant]
  5. VASTAREL (TRIMETAZIDINE HYDROCHLORIDE) [Concomitant]
  6. LEXOMIL (BROMAZEPAM) [Concomitant]
  7. KARDEGIC (ACETYLSALICYLATE LYSINE) [Concomitant]
  8. AMLODIPINE BESYLATE [Concomitant]
  9. MYOLASTAN (TETRAZEPAM) [Concomitant]
  10. LAMALINE (LAMALINE) [Concomitant]

REACTIONS (4)
  - BONE MARROW DEPRESSION [None]
  - DRUG INTERACTION [None]
  - DYSPNOEA [None]
  - PANCYTOPENIA [None]
